FAERS Safety Report 6706012-7 (Version None)
Quarter: 2010Q2

REPORT INFORMATION
  Report Type: 
  Country: None (occurrence: None)
  Receive Date: 20100423
  Receipt Date: 20100112
  Transmission Date: 20101027
  Serious: No
  Sender: FDA-Public Use
  Company Number: ALL1-2010-00156

PATIENT
  Sex: Male

DRUGS (1)
  1. VYVANSE [Suspect]
     Indication: DRUG USE FOR UNKNOWN INDICATION
     Dosage: MG, ORAL
     Route: 048

REACTIONS (5)
  - DRUG DIVERSION [None]
  - FEELING ABNORMAL [None]
  - FEELING JITTERY [None]
  - NERVOUSNESS [None]
  - TREMOR [None]
